FAERS Safety Report 15860745 (Version 1)
Quarter: 2019Q1

REPORT INFORMATION
  Report Type: Report from Study
  Country: None (occurrence: US)
  Receive Date: 20190124
  Receipt Date: 20190124
  Transmission Date: 20190417
  Serious: Yes (Hospitalization)
  Sender: FDA-Public Use
  Company Number: US-ABBVIE-18K-163-2575349-00

PATIENT
  Age: 75 Year
  Sex: Female

DRUGS (1)
  1. HUMIRA [Suspect]
     Active Substance: ADALIMUMAB
     Indication: RHEUMATOID ARTHRITIS
     Route: 058
     Dates: start: 20180321

REACTIONS (4)
  - Hypotension [Unknown]
  - Joint swelling [Unknown]
  - Cardiac failure congestive [Unknown]
  - Family stress [Unknown]

NARRATIVE: CASE EVENT DATE: 20181114
